FAERS Safety Report 20033542 (Version 4)
Quarter: 2022Q1

REPORT INFORMATION
  Report Type: Spontaneous
  Country: JP (occurrence: JP)
  Receive Date: 20211104
  Receipt Date: 20220202
  Transmission Date: 20220423
  Serious: No
  Sender: FDA-Public Use
  Company Number: JP-MYLANLABS-2021M1079260

PATIENT
  Age: 7 Year
  Sex: Female

DRUGS (3)
  1. EPIPEN [Suspect]
     Active Substance: EPINEPHRINE
     Indication: Product used for unknown indication
     Route: 065
  2. SODIUM PICOSULFATE [Concomitant]
     Active Substance: SODIUM PICOSULFATE
     Indication: Product used for unknown indication
     Route: 065
  3. HEPARINOID [Concomitant]
     Indication: Product used for unknown indication
     Route: 061

REACTIONS (2)
  - Device failure [Unknown]
  - Device leakage [Unknown]

NARRATIVE: CASE EVENT DATE: 20211028
